FAERS Safety Report 8814540 (Version 1)
Quarter: 2012Q4

REPORT INFORMATION
  Report Type: Spontaneous
  Country: US (occurrence: None)
  Receive Date: 20120927
  Receipt Date: 20120927
  Transmission Date: 20130627
  Serious: Yes (Hospitalization, Other)
  Sender: FDA-Public Use
  Company Number: 2012AP002945

PATIENT
  Sex: Female

DRUGS (2)
  1. ALENDRONATE SODIUM TABLETS [Suspect]
     Indication: OSTEOPOROSIS
     Dates: start: 20080301, end: 201012
  2. ALENDRONATE SODIUM TABLETS [Suspect]
     Indication: OSTEOPOROSIS
     Dates: start: 20020113, end: 200802

REACTIONS (9)
  - Osteogenesis imperfecta [None]
  - Stress fracture [None]
  - Femur fracture [None]
  - Low turnover osteopathy [None]
  - Multiple injuries [None]
  - Pain [None]
  - Anhedonia [None]
  - Fear of disease [None]
  - Emotional distress [None]
